FAERS Safety Report 14539106 (Version 1)
Quarter: 2018Q1

REPORT INFORMATION
  Report Type: Spontaneous
  Country: US (occurrence: US)
  Receive Date: 20180214
  Receipt Date: 20180214
  Transmission Date: 20180509
  Serious: No
  Sender: FDA-Public Use
  Company Number: None

PATIENT
  Age: 85 Year
  Sex: Female

DRUGS (1)
  1. SUTENT [Suspect]
     Active Substance: SUNITINIB MALATE
     Indication: RENAL CANCER
     Dosage: 37.5MG ONCE DAILY FOR 7 DAYS ON THEN 7 DAYS OFF ORAL
     Route: 048
     Dates: start: 20180124

REACTIONS (2)
  - Dyspepsia [None]
  - Nausea [None]

NARRATIVE: CASE EVENT DATE: 20180209
